FAERS Safety Report 4556446-4 (Version None)
Quarter: 2005Q1

REPORT INFORMATION
  Report Type: 
  Country: None (occurrence: None)
  Receive Date: 20050114
  Receipt Date: 20050104
  Transmission Date: 20050727
  Serious: No
  Sender: FDA-Public Use
  Company Number: RS004868-F

PATIENT
  Age: 53 Year
  Sex: Male
  Weight: 80 kg

DRUGS (4)
  1. PARIET (RABEPRAZOLE) (RABEPRAZOLE SODIUM) [Suspect]
     Indication: ABDOMINAL PAIN UPPER
     Dosage: 20 MG, 1 IN 1 D, ORAL
     Route: 048
  2. ACETAMINOPHEN [Concomitant]
  3. ELAVIL [Concomitant]
  4. SULFASALAZINE [Concomitant]

REACTIONS (1)
  - PORPHYRIA NON-ACUTE [None]
